FAERS Safety Report 7577761-6 (Version None)
Quarter: 2011Q2

REPORT INFORMATION
  Report Type: 
  Country: None (occurrence: None)
  Receive Date: 20110628
  Receipt Date: 20110617
  Transmission Date: 20111010
  Serious: Yes (Life-Threatening, Other)
  Sender: FDA-Public Use
  Company Number: JP-ROCHE-685710

PATIENT
  Sex: Male
  Weight: 78 kg

DRUGS (6)
  1. OXALIPLATIN [Suspect]
     Indication: COLON CANCER
     Route: 041
  2. ISOVORIN [Concomitant]
     Route: 041
     Dates: start: 20090203, end: 20100201
  3. OXALIPLATIN [Suspect]
     Route: 041
     Dates: start: 20080310, end: 20100203
  4. FLUOROURACIL [Suspect]
     Indication: COLON CANCER
     Route: 041
     Dates: start: 20080310, end: 20100201
  5. AVASTIN [Suspect]
     Indication: COLON CANCER
     Route: 041
     Dates: start: 20090203, end: 20100203
  6. LEUCOVORIN CALCIUM [Suspect]
     Indication: COLON CANCER
     Dosage: ADMINISTERED FOR TWO WEEKS EVERY THREE WEEKS
     Route: 041
     Dates: start: 20080310

REACTIONS (4)
  - HAEMORRHAGE SUBCUTANEOUS [None]
  - THROMBOCYTOPENIA [None]
  - CHILLS [None]
  - RENAL FAILURE ACUTE [None]
